FAERS Safety Report 6049268-9 (Version None)
Quarter: 2009Q1

REPORT INFORMATION
  Report Type: 
  Country: None (occurrence: None)
  Receive Date: 20090121
  Receipt Date: 20080201
  Transmission Date: 20090719
  Serious: Yes (Other)
  Sender: FDA-Public Use
  Company Number: HQWYE973010JUL04

PATIENT
  Age: 62 Year
  Sex: Female
  Weight: 116.68 kg

DRUGS (3)
  1. PREMPRO [Suspect]
     Dosage: ORAL
     Route: 048
     Dates: start: 19980301, end: 20020101
  2. PREMARIN [Suspect]
     Route: 067
  3. PREMARIN [Suspect]
     Route: 047
     Dates: start: 19990301, end: 20000301

REACTIONS (1)
  - BREAST CANCER [None]
